FAERS Safety Report 8630675 (Version 3)
Quarter: 2012Q4

REPORT INFORMATION
  Report Type: 
  Country: US (occurrence: US)
  Receive Date: 20120622
  Receipt Date: 20120830
  Transmission Date: 20130627
  Serious: Yes (Other)
  Sender: FDA-Public Use
  Company Number: US-US-EMD SERONO, INC.-7140911

PATIENT
  Age: 58 None
  Sex: Female
  Weight: 86 kg

DRUGS (8)
  1. REBIF [Suspect]
     Indication: MULTIPLE SCLEROSIS
     Route: 058
     Dates: start: 20111213, end: 201206
  2. REBIF [Suspect]
     Route: 058
     Dates: start: 201208
  3. PANTOPRAZOLE [Concomitant]
     Indication: COLITIS ULCERATIVE
  4. IMURAN [Concomitant]
     Indication: COLITIS ULCERATIVE
  5. CORTISOL [Concomitant]
     Indication: COLITIS ULCERATIVE
  6. UNKNOWN MEDICATIONS [Concomitant]
     Indication: PRODUCT USED FOR UNKNOWN INDICATION
  7. BACLOFEN [Concomitant]
  8. GABAPENTIN [Concomitant]
     Indication: PRODUCT USED FOR UNKNOWN INDICATION

REACTIONS (3)
  - Colitis ulcerative [Not Recovered/Not Resolved]
  - Rectal lesion [Not Recovered/Not Resolved]
  - Muscle spasms [Unknown]
